FAERS Safety Report 24413603 (Version 2)
Quarter: 2024Q4

REPORT INFORMATION
  Report Type: Spontaneous
  Country: RU (occurrence: RU)
  Receive Date: 20241008
  Receipt Date: 20241009
  Transmission Date: 20250115
  Serious: Yes (Other)
  Sender: BIOGEN
  Company Number: RU-BIOGEN-2024BI01285191

PATIENT
  Sex: Female

DRUGS (1)
  1. TYSABRI [Suspect]
     Active Substance: NATALIZUMAB
     Indication: Multiple sclerosis
     Route: 050

REACTIONS (3)
  - Abortion spontaneous [Recovered/Resolved]
  - Respiratory tract infection viral [Unknown]
  - Maternal exposure during pregnancy [Recovered/Resolved]
